FAERS Safety Report 18174011 (Version 1)
Quarter: 2020Q3

REPORT INFORMATION
  Report Type: Spontaneous
  Country: US (occurrence: US)
  Receive Date: 20200819
  Receipt Date: 20200819
  Transmission Date: 20201103
  Serious: Yes (Hospitalization)
  Sender: FDA-Public Use
  Company Number: None

PATIENT
  Age: 20 Year
  Sex: Female

DRUGS (9)
  1. LEUKINE [Suspect]
     Active Substance: SARGRAMOSTIM
     Indication: ADRENAL GLAND CANCER
  2. CEFIXIME. [Concomitant]
     Active Substance: CEFIXIME
  3. HYDROMORPHON [Concomitant]
     Active Substance: HYDROMORPHONE
  4. PAIN RELIEF NOS [Concomitant]
     Active Substance: CAMPHOR (SYNTHETIC)\LEVOMENTHOL\MENTHYL SALICYLATE OR CAMPHOR (SYNTHETIC)\MENTHOL\MENTHYL SALICYLATE OR MENTHOL\MENTHYL SALICYLATE
  5. LEVOTHYROXIN [Concomitant]
     Active Substance: LEVOTHYROXINE
  6. ONDANSETRON [Concomitant]
     Active Substance: ONDANSETRON
  7. GRANISETRON [Concomitant]
     Active Substance: GRANISETRON
  8. PARICALCITOL. [Concomitant]
     Active Substance: PARICALCITOL
  9. TRI?LO [Concomitant]

REACTIONS (1)
  - Malignant neoplasm progression [None]

NARRATIVE: CASE EVENT DATE: 20200813
